FAERS Safety Report 6641181-9 (Version None)
Quarter: 2010Q1

REPORT INFORMATION
  Report Type: 
  Country: None (occurrence: None)
  Receive Date: 20100318
  Receipt Date: 20100305
  Transmission Date: 20100710
  Serious: Yes (Other)
  Sender: FDA-Public Use
  Company Number: PHEH2006US01838

PATIENT
  Sex: Female
  Weight: 64.399 kg

DRUGS (31)
  1. ZOMETA [Suspect]
     Dosage: NOT SPECIFIED
  2. AREDIA [Suspect]
     Dosage: UNK, UNK
  3. THALIDOMIDE [Concomitant]
     Indication: PLASMACYTOMA
     Dosage: UNK, UNK
  4. HYDROCHLOROTHIAZIDE [Concomitant]
     Indication: HYPERTENSION
     Dosage: 25 MG, QD
     Route: 048
  5. K-DUR [Concomitant]
     Dosage: 10 MEQ, QD
     Route: 048
  6. COZAAR [Concomitant]
     Indication: HYPERTENSION
     Dosage: 25 MG, QD
     Route: 048
  7. DECADRON [Concomitant]
     Indication: PLASMACYTOMA
     Dosage: UNK, UNK
  8. ARANESP [Concomitant]
  9. PEG-INTRON [Concomitant]
     Indication: HEPATITIS C
  10. LEVAQUIN [Concomitant]
     Dosage: 250 MG, QD
     Route: 048
  11. OXYCODONE HCL AND ACETAMINOPHEN [Concomitant]
     Dosage: 5-325 MG, PRN
     Route: 048
  12. PROMETHAZINE [Concomitant]
     Dosage: 25 MG, PRN
     Route: 048
  13. CYCLOBENZAPRINE [Concomitant]
     Dosage: 10 MG, TID
     Route: 048
  14. AMOXICILLIN [Concomitant]
     Dosage: 875 MG, TID
     Route: 048
  15. OXYCODONE [Concomitant]
     Dosage: 5 MG, PRN
     Route: 048
  16. LISINOPRIL [Concomitant]
     Dosage: 20 MG, QD
     Route: 048
  17. ZYRTEC [Concomitant]
     Dosage: 10 MG, QD
     Route: 048
  18. ZITHROMAX [Concomitant]
     Dosage: 250 MG, QD
     Route: 048
  19. NORVASC [Concomitant]
     Dosage: 10 MG, QD
     Route: 048
  20. SINGULAIR [Concomitant]
     Dosage: 10 MG, QD
     Route: 048
  21. BENZONATATE [Concomitant]
     Dosage: 100 MG, TID
     Route: 048
  22. METOPROLOL TARTRATE [Concomitant]
     Dosage: 50 MG, BID
     Route: 048
  23. INDERAL [Concomitant]
     Dosage: 80 MG, QD
     Route: 048
  24. NIFEDIAC [Concomitant]
     Dosage: 30 MG, QD
     Route: 048
  25. LUNESTA [Concomitant]
     Dosage: 2 MG, QHS
     Route: 048
  26. CLINDAMYCIN [Concomitant]
     Dosage: 1 %, TID
     Route: 061
  27. MORPHINE [Concomitant]
     Dosage: 15 MG, BID
     Route: 048
  28. OMEPRAZOLE [Concomitant]
     Dosage: 20 MG, BID
     Route: 048
  29. CIPROFLOXACIN [Concomitant]
     Dosage: 500 MG, BID
     Route: 048
  30. TERCONAZOLE [Concomitant]
     Dosage: 0.8 %, QHS
     Route: 067
  31. LASIX [Concomitant]
     Dosage: 20 MG, QD
     Route: 048

REACTIONS (11)
  - ENDODONTIC PROCEDURE [None]
  - INFECTION [None]
  - JOINT INJURY [None]
  - KNEE ARTHROPLASTY [None]
  - LYMPHADENOPATHY [None]
  - MULTIPLE MYELOMA [None]
  - NECROSIS [None]
  - OSTEONECROSIS [None]
  - OSTEOPOROSIS [None]
  - TOOTH EXTRACTION [None]
  - TOOTH FRACTURE [None]
